FAERS Safety Report 16930707 (Version 2)
Quarter: 2020Q3

REPORT INFORMATION
  Report Type: Other
  Country: CN (occurrence: CN)
  Receive Date: 20191017
  Receipt Date: 20200717
  Transmission Date: 20201102
  Serious: Yes (Other)
  Sender: FDA-Public Use
  Company Number: CN-ROCHE-2011490

PATIENT
  Age: 44 Year
  Sex: Female
  Weight: 40 kg

DRUGS (1)
  1. AVASTIN [Suspect]
     Active Substance: BEVACIZUMAB
     Indication: ADENOCARCINOMA OF COLON
     Route: 041
     Dates: start: 20150315

REACTIONS (6)
  - Nasopharyngitis [Unknown]
  - Vomiting [Unknown]
  - Appendicitis [Unknown]
  - Abdominal discomfort [Unknown]
  - Feeding disorder [Unknown]
  - Discomfort [Unknown]

NARRATIVE: CASE EVENT DATE: 20190924
